FAERS Safety Report 9943863 (Version 2)
Quarter: 2015Q3

REPORT INFORMATION
  Report Type: Spontaneous
  Country: US (occurrence: US)
  Receive Date: 20140303
  Receipt Date: 20150730
  Transmission Date: 20151125
  Serious: No
  Sender: FDA-Public Use
  Company Number: US-GILEAD-2012-0058367

PATIENT
  Age: 70 Year
  Sex: Male

DRUGS (1)
  1. RANEXA [Suspect]
     Active Substance: RANOLAZINE
     Indication: PRODUCT USED FOR UNKNOWN INDICATION
     Dosage: 500 MG, BID
     Route: 055

REACTIONS (4)
  - Hypotension [Unknown]
  - Dizziness [Unknown]
  - Confusional state [Unknown]
  - Varices oesophageal [Unknown]

NARRATIVE: CASE EVENT DATE: 201203
